FAERS Safety Report 5974371-9 (Version None)
Quarter: 2008Q4

REPORT INFORMATION
  Report Type: 
  Country: None (occurrence: None)
  Receive Date: 20081201
  Receipt Date: 20080128
  Transmission Date: 20090506
  Serious: No
  Sender: FDA-Public Use
  Company Number: US-AMGEN-KDL259951

PATIENT
  Sex: Female
  Weight: 84 kg

DRUGS (1)
  1. ENBREL [Suspect]
     Indication: PSORIASIS
     Route: 058
     Dates: start: 20080103

REACTIONS (10)
  - BLOOD PRESSURE INCREASED [None]
  - CAPILLARY DISORDER [None]
  - DIZZINESS [None]
  - EYE PAIN [None]
  - HEADACHE [None]
  - INJECTION SITE REACTION [None]
  - NAUSEA [None]
  - OCULAR HYPERAEMIA [None]
  - RHINORRHOEA [None]
  - SINUS DISORDER [None]
